FAERS Safety Report 15934669 (Version 1)
Quarter: 2019Q1

REPORT INFORMATION
  Report Type: Spontaneous
  Country: None (occurrence: US)
  Receive Date: 20190207
  Receipt Date: 20190207
  Transmission Date: 20190417
  Serious: No
  Sender: FDA-Public Use
  Company Number: US-NEXGEN PHARMA, INC.-2062311

PATIENT

DRUGS (1)
  1. BUTALBITAL, ACETAMINOPHEN, AND CAFFEINE CAPSULES [Suspect]
     Active Substance: ACETAMINOPHEN\BUTALBITAL\CAFFEINE
     Route: 048

REACTIONS (1)
  - Drug ineffective [Unknown]
